FAERS Safety Report 6842712-6 (Version None)
Quarter: 2010Q3

REPORT INFORMATION
  Report Type: 
  Country: None (occurrence: None)
  Receive Date: 20100714
  Receipt Date: 20070806
  Transmission Date: 20110219
  Serious: No
  Sender: FDA-Public Use
  Company Number: US-PFIZER INC-2007065724

PATIENT
  Sex: Male
  Weight: 85 kg

DRUGS (9)
  1. CHANTIX [Suspect]
     Indication: EX-TOBACCO USER
     Dates: start: 20070801
  2. PREDNISONE TAB [Concomitant]
  3. NAPROSYN [Concomitant]
  4. HYDROXYZINE [Concomitant]
  5. DILANTIN [Concomitant]
  6. SULFASALAZINE [Concomitant]
  7. CLONAZEPAM [Concomitant]
  8. DIAZEPAM [Concomitant]
  9. SEROQUEL [Concomitant]

REACTIONS (1)
  - DRUG DOSE OMISSION [None]
